FAERS Safety Report 21499298 (Version 1)
Quarter: 2022Q4

REPORT INFORMATION
  Report Type: Spontaneous
  Country: US (occurrence: None)
  Receive Date: 20221023
  Receipt Date: 20221023
  Transmission Date: 20230113
  Serious: Yes (Other)
  Sender: FDA-Public Use
  Company Number: None

PATIENT
  Age: 36 Year
  Sex: Female
  Weight: 53.1 kg

DRUGS (2)
  1. TAMOXIFEN [Suspect]
     Active Substance: TAMOXIFEN
     Indication: Prophylactic chemotherapy
     Dosage: OTHER FREQUENCY : 1/2 EVERY OTHER DA;?
     Route: 048
     Dates: start: 20211024, end: 20220117
  2. TAMOXIFEN [Suspect]
     Active Substance: TAMOXIFEN
     Indication: Intraductal proliferative breast lesion

REACTIONS (2)
  - Fatigue [None]
  - Muscle disorder [None]

NARRATIVE: CASE EVENT DATE: 20211111
